FAERS Safety Report 15046186 (Version 1)
Quarter: 2018Q2

REPORT INFORMATION
  Report Type: Report from Study
  Country: US (occurrence: US)
  Receive Date: 20180621
  Receipt Date: 20180621
  Transmission Date: 20180711
  Serious: Yes (Other)
  Sender: FDA-Public Use
  Company Number: US-TAKEDA-2018TUS020198

PATIENT
  Sex: Male

DRUGS (1)
  1. PONATINIB [Suspect]
     Active Substance: PONATINIB
     Indication: CHRONIC MYELOID LEUKAEMIA
     Dosage: 15 MG, QD
     Route: 048
     Dates: start: 20140428

REACTIONS (5)
  - Blood magnesium decreased [Unknown]
  - Musculoskeletal pain [Unknown]
  - Gastrooesophageal reflux disease [Unknown]
  - Blood creatine phosphokinase increased [Unknown]
  - Lipase increased [Unknown]
